FAERS Safety Report 7636892-2 (Version None)
Quarter: 2011Q3

REPORT INFORMATION
  Report Type: 
  Country: None (occurrence: None)
  Receive Date: 20110726
  Receipt Date: 20110616
  Transmission Date: 20111222
  Serious: No
  Sender: FDA-Public Use
  Company Number: US-BAYER-2011-053972

PATIENT
  Age: 84 Year
  Sex: Female
  Weight: 101.13 kg

DRUGS (2)
  1. ALEVE (CAPLET) [Suspect]
     Indication: BACK PAIN
     Dosage: 220 MG, BID, BOTTLE COUNT 50S
     Route: 048
     Dates: start: 20110401
  2. LEVOXYL [Concomitant]

REACTIONS (1)
  - NO ADVERSE EVENT [None]
